FAERS Safety Report 9602521 (Version 3)
Quarter: 2013Q4

REPORT INFORMATION
  Report Type: Spontaneous
  Country: US (occurrence: US)
  Receive Date: 20131007
  Receipt Date: 20131014
  Transmission Date: 20140711
  Serious: Yes (Hospitalization)
  Sender: FDA-Public Use
  Company Number: US-GILEAD-2013-0084216

PATIENT
  Sex: Male

DRUGS (3)
  1. LETAIRIS [Suspect]
     Indication: PULMONARY HYPERTENSION
     Dosage: 10 MG, QD
     Route: 048
     Dates: start: 20130827
  2. LETAIRIS [Suspect]
     Indication: PULMONARY HYPERTENSION
  3. WARFARIN [Concomitant]

REACTIONS (2)
  - Dyspnoea [Unknown]
  - Swelling [Unknown]
